FAERS Safety Report 9908290 (Version 1)
Quarter: 2014Q1

REPORT INFORMATION
  Report Type: Spontaneous
  Country: FR (occurrence: FR)
  Receive Date: 20140219
  Receipt Date: 20140219
  Transmission Date: 20141002
  Serious: Yes (Other)
  Sender: FDA-Public Use
  Company Number: FR-ASTRAZENECA-2014SE10858

PATIENT
  Sex: Female

DRUGS (1)
  1. XEROQUEL [Suspect]
     Route: 048

REACTIONS (1)
  - Pulmonary embolism [Unknown]
